FAERS Safety Report 12524847 (Version 2)
Quarter: 2016Q3

REPORT INFORMATION
  Report Type: Spontaneous
  Country: FR (occurrence: FR)
  Receive Date: 20160704
  Receipt Date: 20160908
  Transmission Date: 20161109
  Serious: Yes (Death, Other)
  Sender: FDA-Public Use
  Company Number: FR-BRISTOL-MYERS SQUIBB COMPANY-BMS-2016-053291

PATIENT
  Sex: Female

DRUGS (1)
  1. NIVOLUMAB [Suspect]
     Active Substance: NIVOLUMAB
     Indication: LUNG NEOPLASM
     Dosage: NOT AVAILABLE
     Route: 065
     Dates: start: 201512

REACTIONS (5)
  - Vena cava thrombosis [Unknown]
  - Atrial thrombosis [Unknown]
  - Muscle spasms [Unknown]
  - Malignant neoplasm progression [Fatal]
  - Cerebrovascular accident [Unknown]
